FAERS Safety Report 15074349 (Version 3)
Quarter: 2018Q3

REPORT INFORMATION
  Report Type: Report from Study
  Country: DE (occurrence: DE)
  Receive Date: 20180627
  Receipt Date: 20180927
  Transmission Date: 20181010
  Serious: Yes (Other)
  Sender: FDA-Public Use
  Company Number: DE-TEVA-2018-DE-912043

PATIENT
  Age: 66 Year
  Sex: Male
  Weight: 85 kg

DRUGS (98)
  1. PREDNISONE. [Interacting]
     Active Substance: PREDNISONE
     Route: 048
     Dates: start: 20180613, end: 20180616
  2. VINCRISTINE [Interacting]
     Active Substance: VINCRISTINE
     Route: 041
     Dates: start: 20180313, end: 20180313
  3. RANITIDIN [Concomitant]
     Active Substance: RANITIDINE HYDROCHLORIDE
     Route: 042
     Dates: start: 20180612, end: 20180612
  4. KEVATRIL [Concomitant]
     Active Substance: GRANISETRON HYDROCHLORIDE
     Indication: PROPHYLAXIS
     Route: 042
     Dates: start: 20180221, end: 20180221
  5. KEVATRIL [Concomitant]
     Active Substance: GRANISETRON HYDROCHLORIDE
     Route: 042
     Dates: start: 20180404, end: 20180404
  6. MESNA. [Concomitant]
     Active Substance: MESNA
     Route: 042
     Dates: start: 20180313, end: 20180313
  7. PARACETAMOL [Concomitant]
     Active Substance: ACETAMINOPHEN
     Route: 048
     Dates: start: 20180312, end: 20180312
  8. TAVEGIL [Concomitant]
     Active Substance: CLEMASTINE FUMARATE
     Route: 042
     Dates: start: 20180403, end: 20180403
  9. KEVATRIL [Concomitant]
     Active Substance: GRANISETRON HYDROCHLORIDE
     Route: 042
     Dates: start: 20180503, end: 20180503
  10. KEVATRIL [Concomitant]
     Active Substance: GRANISETRON HYDROCHLORIDE
     Route: 042
     Dates: start: 20180613, end: 20180613
  11. NEULASTA [Concomitant]
     Active Substance: PEGFILGRASTIM
     Route: 058
     Dates: start: 20180525, end: 20180525
  12. NEULASTA [Concomitant]
     Active Substance: PEGFILGRASTIM
     Route: 058
     Dates: start: 20180505, end: 20180505
  13. PREDNISONE. [Interacting]
     Active Substance: PREDNISONE
     Route: 048
     Dates: start: 20180523, end: 20180526
  14. DOXORUBICIN [Interacting]
     Active Substance: DOXORUBICIN
     Route: 041
  15. RIXIMYO [Interacting]
     Active Substance: RITUXIMAB
     Indication: DIFFUSE LARGE B-CELL LYMPHOMA
     Dosage: 740 MG, UNK
     Route: 041
     Dates: start: 20180403, end: 20180403
  16. RIXIMYO [Interacting]
     Active Substance: RITUXIMAB
     Route: 041
     Dates: start: 20180612, end: 20180612
  17. ALLOPURINOL. [Concomitant]
     Active Substance: ALLOPURINOL
     Indication: PROPHYLAXIS
     Route: 048
     Dates: start: 20180213, end: 20180311
  18. MESNA. [Concomitant]
     Active Substance: MESNA
     Route: 042
     Dates: start: 20180503, end: 20180503
  19. PREDNISOLUT [Concomitant]
     Active Substance: PREDNISOLONE
     Route: 042
     Dates: start: 20180502, end: 20180502
  20. PREDNISOLUT [Concomitant]
     Active Substance: PREDNISOLONE
     Route: 042
     Dates: start: 20180403, end: 20180403
  21. SALBUTAMOL [Concomitant]
     Active Substance: ALBUTEROL
     Indication: ASTHMA
     Route: 048
     Dates: start: 201711
  22. PARACETAMOL [Concomitant]
     Active Substance: ACETAMINOPHEN
     Route: 048
     Dates: start: 20180522, end: 20180522
  23. PARACETAMOL [Concomitant]
     Active Substance: ACETAMINOPHEN
     Indication: PROPHYLAXIS
     Route: 048
     Dates: start: 20180219, end: 20180219
  24. DOXORUBICIN [Interacting]
     Active Substance: DOXORUBICIN
     Dosage: 99 MG, (INFUSION RATE 8.3 ML/MIN FROM 09:35 TO 10:05)
     Route: 041
     Dates: start: 20180313, end: 20180313
  25. CYCLOPHOSPHAMIDE. [Interacting]
     Active Substance: CYCLOPHOSPHAMIDE
     Indication: DIFFUSE LARGE B-CELL LYMPHOMA
     Route: 041
     Dates: start: 20180221, end: 20180221
  26. CYCLOPHOSPHAMIDE. [Interacting]
     Active Substance: CYCLOPHOSPHAMIDE
     Route: 041
  27. AMPHO MORONAL [Concomitant]
     Active Substance: AMPHOTERICIN B
     Route: 048
     Dates: start: 20180502, end: 20180509
  28. PREDNISOLUT [Concomitant]
     Active Substance: PREDNISOLONE
     Route: 042
     Dates: start: 20180220, end: 20180220
  29. MESNA. [Concomitant]
     Active Substance: MESNA
     Route: 042
     Dates: start: 20180404, end: 20180404
  30. TAVEGIL [Concomitant]
     Active Substance: CLEMASTINE FUMARATE
     Indication: PROPHYLAXIS
     Route: 042
     Dates: start: 20180219, end: 20180219
  31. PREDNISONE. [Interacting]
     Active Substance: PREDNISONE
     Route: 048
     Dates: start: 20180221, end: 20180225
  32. VINCRISTINE [Interacting]
     Active Substance: VINCRISTINE
     Indication: DIFFUSE LARGE B-CELL LYMPHOMA
     Dosage: 2 MG, (INFUSION RATE 2 ML/MIN FROM 07:30 TO 07:35)
     Route: 041
     Dates: start: 20180404, end: 20180404
  33. DOXORUBICIN [Interacting]
     Active Substance: DOXORUBICIN
     Dosage: 99 MG, (INFUSION RATE 8.4 ML/MIN FROM 10:00 TO 10:30)
     Route: 041
     Dates: start: 20180523, end: 20180523
  34. CYCLOPHOSPHAMIDE. [Interacting]
     Active Substance: CYCLOPHOSPHAMIDE
     Dosage: 1480 MG, (INFUSION RATE 4.17 ML/MIN FROM 07:35 TO 09:35)
     Route: 041
     Dates: start: 20180313, end: 20180313
  35. RANITIDIN [Concomitant]
     Active Substance: RANITIDINE HYDROCHLORIDE
     Route: 042
     Dates: start: 20180502, end: 20180502
  36. AMPHO MORONAL [Concomitant]
     Active Substance: AMPHOTERICIN B
     Route: 048
     Dates: start: 20180612, end: 20180618
  37. KEVATRIL [Concomitant]
     Active Substance: GRANISETRON HYDROCHLORIDE
     Route: 042
     Dates: start: 20180222, end: 20180222
  38. MESNA. [Concomitant]
     Active Substance: MESNA
     Route: 042
     Dates: start: 20180613, end: 20180613
  39. KEVATRIL [Concomitant]
     Active Substance: GRANISETRON HYDROCHLORIDE
     Route: 042
     Dates: start: 20180405, end: 20180405
  40. BISOPROLOL [Concomitant]
     Active Substance: BISOPROLOL
     Indication: HYPERTENSION
     Route: 048
     Dates: start: 20170830
  41. PREDNISOLUT [Concomitant]
     Active Substance: PREDNISOLONE
     Route: 042
     Dates: start: 20180612, end: 20180612
  42. PARACETAMOL [Concomitant]
     Active Substance: ACETAMINOPHEN
     Route: 048
     Dates: start: 20180220, end: 20180220
  43. KEVATRIL [Concomitant]
     Active Substance: GRANISETRON HYDROCHLORIDE
     Route: 042
     Dates: start: 20180523, end: 20180523
  44. PREDNISONE. [Interacting]
     Active Substance: PREDNISONE
     Route: 048
     Dates: start: 20180503, end: 20180506
  45. VINCRISTINE [Interacting]
     Active Substance: VINCRISTINE
     Route: 041
     Dates: start: 20180221, end: 20180221
  46. VINCRISTINE [Interacting]
     Active Substance: VINCRISTINE
     Dosage: 2 MG, (INFUSION RATE 2 ML/MIN FROM 07:30 TO 07:35)
     Route: 041
     Dates: start: 20180503, end: 20180503
  47. VINCRISTINE [Interacting]
     Active Substance: VINCRISTINE
     Route: 041
     Dates: start: 20180613, end: 20180613
  48. VINCRISTINE [Interacting]
     Active Substance: VINCRISTINE
     Route: 041
  49. DOXORUBICIN [Interacting]
     Active Substance: DOXORUBICIN
     Route: 041
     Dates: start: 20180613, end: 20180613
  50. CYCLOPHOSPHAMIDE. [Interacting]
     Active Substance: CYCLOPHOSPHAMIDE
     Route: 041
     Dates: start: 20180404, end: 20180404
  51. PREDNISOLUT [Concomitant]
     Active Substance: PREDNISOLONE
     Route: 042
     Dates: start: 20180522, end: 20180522
  52. PREDNISOLUT [Concomitant]
     Active Substance: PREDNISOLONE
     Indication: PROPHYLAXIS
     Route: 042
     Dates: start: 20180219, end: 20180219
  53. AMPHO MORONAL [Concomitant]
     Active Substance: AMPHOTERICIN B
     Route: 048
     Dates: start: 20180312, end: 20180318
  54. KEVATRIL [Concomitant]
     Active Substance: GRANISETRON HYDROCHLORIDE
     Route: 042
     Dates: start: 20180313, end: 20180313
  55. PREDNISOLUT [Concomitant]
     Active Substance: PREDNISOLONE
     Route: 048
  56. PARACETAMOL [Concomitant]
     Active Substance: ACETAMINOPHEN
     Route: 048
     Dates: start: 20180403, end: 20180403
  57. KEVATRIL [Concomitant]
     Active Substance: GRANISETRON HYDROCHLORIDE
     Dates: start: 20180314, end: 20180314
  58. NEULASTA [Concomitant]
     Active Substance: PEGFILGRASTIM
     Route: 058
     Dates: start: 20180514, end: 20180514
  59. VINCRISTINE [Interacting]
     Active Substance: VINCRISTINE
     Route: 041
     Dates: start: 20180523, end: 20180523
  60. DOXORUBICIN [Interacting]
     Active Substance: DOXORUBICIN
     Dosage: 99 MG, (INFUSION RATE 8.3 ML/MIN FROM 10:35 TO 11:05)
     Route: 041
     Dates: start: 20180221, end: 20180221
  61. RIXIMYO [Interacting]
     Active Substance: RITUXIMAB
     Dosage: 740 MG, (INFUSION RATE 4.17 ML/MIN FROM 07:30 TO 09:30)
     Route: 041
     Dates: start: 20180502, end: 20180502
  62. TAVEGIL [Concomitant]
     Active Substance: CLEMASTINE FUMARATE
     Route: 042
     Dates: start: 20180522, end: 20180522
  63. TAVEGIL [Concomitant]
     Active Substance: CLEMASTINE FUMARATE
     Route: 042
     Dates: start: 20180612, end: 20180612
  64. RANITIDIN [Concomitant]
     Active Substance: RANITIDINE HYDROCHLORIDE
     Indication: PROPHYLAXIS
     Route: 042
     Dates: start: 20180219, end: 20180219
  65. RANITIDIN [Concomitant]
     Active Substance: RANITIDINE HYDROCHLORIDE
     Route: 042
     Dates: start: 20180220, end: 20180220
  66. KEVATRIL [Concomitant]
     Active Substance: GRANISETRON HYDROCHLORIDE
     Route: 042
     Dates: start: 20180504, end: 20180504
  67. NEULASTA [Concomitant]
     Active Substance: PEGFILGRASTIM
     Route: 058
     Dates: start: 20180615, end: 20180615
  68. SILAPO [Concomitant]
     Indication: PRODUCT USED FOR UNKNOWN INDICATION
     Dosage: 20.000 IE, QW
     Route: 058
     Dates: start: 20180503
  69. RIXIMYO [Interacting]
     Active Substance: RITUXIMAB
     Route: 041
     Dates: start: 20180312, end: 20180312
  70. RIXIMYO [Interacting]
     Active Substance: RITUXIMAB
     Route: 041
     Dates: start: 20180219, end: 20180219
  71. RIXIMYO [Interacting]
     Active Substance: RITUXIMAB
     Dosage: 740 MG, (INFUSION RATE 4.2 ML/MIN FROM 08:00 TO 10:00)
     Route: 041
     Dates: start: 20180522, end: 20180522
  72. RIXIMYO [Interacting]
     Active Substance: RITUXIMAB
     Route: 041
  73. CYCLOPHOSPHAMIDE. [Interacting]
     Active Substance: CYCLOPHOSPHAMIDE
     Route: 042
     Dates: start: 20180613, end: 20180613
  74. CYCLOPHOSPHAMIDE. [Interacting]
     Active Substance: CYCLOPHOSPHAMIDE
     Route: 042
     Dates: start: 20180523, end: 20180523
  75. CYCLOPHOSPHAMIDE. [Interacting]
     Active Substance: CYCLOPHOSPHAMIDE
     Dosage: 1480 MG, (INFUSION RATE 4.17 ML/MIN FROM 07:35 TO 09:35)
     Route: 042
     Dates: start: 20180503, end: 20180503
  76. RANITIDIN [Concomitant]
     Active Substance: RANITIDINE HYDROCHLORIDE
     Route: 042
     Dates: start: 20180522, end: 20180522
  77. TAVEGIL [Concomitant]
     Active Substance: CLEMASTINE FUMARATE
     Route: 042
     Dates: start: 20180220, end: 20180220
  78. AMPHO MORONAL [Concomitant]
     Active Substance: AMPHOTERICIN B
     Route: 048
     Dates: start: 20180522, end: 20180528
  79. PARACETAMOL [Concomitant]
     Active Substance: ACETAMINOPHEN
     Route: 048
     Dates: start: 20180502, end: 20180502
  80. AMPHO MORONAL [Concomitant]
     Active Substance: AMPHOTERICIN B
     Indication: PROPHYLAXIS
     Route: 048
     Dates: start: 20180219, end: 20180226
  81. TAVEGIL [Concomitant]
     Active Substance: CLEMASTINE FUMARATE
     Route: 042
     Dates: start: 20180312, end: 20180312
  82. KEVATRIL [Concomitant]
     Active Substance: GRANISETRON HYDROCHLORIDE
     Route: 042
     Dates: start: 20180524, end: 20180524
  83. KEVATRIL [Concomitant]
     Active Substance: GRANISETRON HYDROCHLORIDE
     Route: 042
     Dates: start: 20180614, end: 20180614
  84. PREDNISONE. [Suspect]
     Active Substance: PREDNISONE
     Indication: DIFFUSE LARGE B-CELL LYMPHOMA
     Route: 048
     Dates: start: 20180404, end: 20180407
  85. PREDNISONE. [Interacting]
     Active Substance: PREDNISONE
     Route: 048
     Dates: start: 20180313, end: 20180317
  86. DOXORUBICIN [Interacting]
     Active Substance: DOXORUBICIN
     Indication: DIFFUSE LARGE B-CELL LYMPHOMA
     Route: 041
     Dates: start: 20180404, end: 20180404
  87. DOXORUBICIN [Interacting]
     Active Substance: DOXORUBICIN
     Dosage: 99 MG, (INFUSION RATE 8.3 ML/MIN FROM 09:35 TO 10:05)
     Route: 041
     Dates: start: 20180503, end: 20180503
  88. CYCLOPHOSPHAMIDE. [Interacting]
     Active Substance: CYCLOPHOSPHAMIDE
     Route: 042
     Dates: start: 20180404, end: 20180404
  89. RANITIDIN [Concomitant]
     Active Substance: RANITIDINE HYDROCHLORIDE
     Route: 042
     Dates: start: 20180403, end: 20180403
  90. TAVEGIL [Concomitant]
     Active Substance: CLEMASTINE FUMARATE
     Route: 042
     Dates: start: 20180502, end: 20180502
  91. AMPHO MORONAL [Concomitant]
     Active Substance: AMPHOTERICIN B
     Route: 048
     Dates: start: 20180403, end: 20180409
  92. PREDNISOLUT [Concomitant]
     Active Substance: PREDNISOLONE
     Route: 042
     Dates: start: 20180312, end: 20180312
  93. PANTOZOL [Concomitant]
     Active Substance: PANTOPRAZOLE SODIUM
     Indication: PROPHYLAXIS
     Route: 048
     Dates: start: 20180219
  94. MESNA. [Concomitant]
     Active Substance: MESNA
     Indication: PROPHYLAXIS
     Route: 042
     Dates: start: 20180221, end: 20180221
  95. RANITIDIN [Concomitant]
     Active Substance: RANITIDINE HYDROCHLORIDE
     Route: 042
     Dates: start: 20180312, end: 20180312
  96. COTRIM [Concomitant]
     Active Substance: SULFAMETHOXAZOLE\TRIMETHOPRIM
     Indication: PROPHYLAXIS
     Dosage: (3 DAYS WEEKLY)
     Route: 048
     Dates: start: 20180219
  97. PARACETAMOL [Concomitant]
     Active Substance: ACETAMINOPHEN
     Route: 048
     Dates: start: 20180612, end: 20180612
  98. ACIC [Concomitant]
     Active Substance: ACYCLOVIR
     Indication: PROPHYLAXIS
     Route: 048
     Dates: start: 20180219

REACTIONS (18)
  - Dizziness [Recovered/Resolved]
  - Anaemia [Not Recovered/Not Resolved]
  - Pulpitis dental [Recovered/Resolved]
  - Product use in unapproved indication [Unknown]
  - Lymphoedema [Recovered/Resolved]
  - Drug interaction [Unknown]
  - C-reactive protein increased [Recovered/Resolved]
  - Oedema peripheral [Not Recovered/Not Resolved]
  - Off label use [Unknown]
  - Vitamin D deficiency [Not Recovered/Not Resolved]
  - Leukopenia [Recovered/Resolved]
  - Asthma [Recovered/Resolved]
  - Pain [Recovered/Resolved]
  - Nausea [Recovered/Resolved]
  - Polyneuropathy [Not Recovered/Not Resolved]
  - C-reactive protein increased [Recovered/Resolved]
  - Deep vein thrombosis [Recovered/Resolved]
  - Drug therapeutic incompatibility [Recovered/Resolved]

NARRATIVE: CASE EVENT DATE: 20180219
